FAERS Safety Report 4441933-X (Version None)
Quarter: 2004Q3

REPORT INFORMATION
  Report Type: 
  Country: None (occurrence: None)
  Receive Date: 20040901
  Receipt Date: 20040817
  Transmission Date: 20050211
  Serious: Yes (Hospitalization)
  Sender: FDA-Public Use
  Company Number: 2004229286CA

PATIENT
  Age: 84 Year
  Sex: Female

DRUGS (15)
  1. MICRONASE [Suspect]
     Indication: DIABETES MELLITUS NON-INSULIN-DEPENDENT
     Dosage: 5 MG, QD
  2. METIGUANIDE (METFORMIN HYDROCHLORIDE) TABLET [Suspect]
     Dosage: 2000 MG, QD
  3. GATIFLOXACIN [Suspect]
     Indication: COUGH
     Dosage: 400 MG, QD
  4. WARFARIN SODIUM [Concomitant]
  5. RAMIPRIL [Concomitant]
  6. LEVOTHYROXINE SODIUM [Concomitant]
  7. ATORVASTATIN (ATORVASTATIN) [Concomitant]
  8. OMEPRAZOLE [Concomitant]
  9. ALENDRONATE SODIUM [Concomitant]
  10. CALCIUM [Concomitant]
  11. VITAMIN D [Concomitant]
  12. FLUTICASONE PROPIONATE [Concomitant]
  13. MIACALCIN [Concomitant]
  14. IRON SULFATETHIAMIN COMPOUND TAB [Concomitant]
  15. ACETAMINOPHEN [Concomitant]

REACTIONS (4)
  - CONFUSIONAL STATE [None]
  - COUGH [None]
  - DRUG INTERACTION [None]
  - HYPOGLYCAEMIA [None]
